FAERS Safety Report 9571929 (Version 2)
Quarter: 2013Q4

REPORT INFORMATION
  Report Type: Spontaneous
  Country: MX (occurrence: MX)
  Receive Date: 20131001
  Receipt Date: 20131112
  Transmission Date: 20140711
  Serious: Yes (Death)
  Sender: FDA-Public Use
  Company Number: MX-ACTELION-A-CH2013-88942

PATIENT
  Age: 25 Year
  Sex: Female
  Weight: 60 kg

DRUGS (5)
  1. TRACLEER [Suspect]
     Indication: PULMONARY ARTERIAL HYPERTENSION
     Dosage: 62.5 MG, BID
     Route: 048
     Dates: start: 20130901, end: 20130911
  2. SILDENAFIL [Concomitant]
     Dosage: UNK
     Dates: start: 20130901, end: 20130911
  3. CLEXANE [Concomitant]
     Dosage: 60 MG, Q12HRS
     Dates: start: 20130901, end: 20130911
  4. LEVOSIMENDAN [Concomitant]
     Dosage: 0.05 ?G/KG, PER MIN
     Dates: start: 20130901, end: 20130911
  5. VENTAVIS BAYER SCHERING [Concomitant]
     Indication: PULMONARY ARTERIAL HYPERTENSION
     Dosage: 10 ?G/ML, Q4HRS
     Route: 055
     Dates: start: 20130901, end: 20130911

REACTIONS (1)
  - Pulmonary embolism [Fatal]
